FAERS Safety Report 4297339-X (Version None)
Quarter: 2004Q1

REPORT INFORMATION
  Report Type: 
  Country: None (occurrence: None)
  Receive Date: 20040212
  Receipt Date: 20030908
  Transmission Date: 20041129
  Serious: Yes (Other)
  Sender: FDA-Public Use
  Company Number: A03200302063

PATIENT
  Age: 35 Year
  Sex: Female
  Weight: 61.2356 kg

DRUGS (2)
  1. AMBIEN [Suspect]
     Indication: INSOMNIA
     Dosage: 10 MG HS - ORAL
     Route: 048
     Dates: start: 20020101
  2. ORAL CONTRACEPTIVE NOS [Concomitant]

REACTIONS (3)
  - DRUG DEPENDENCE [None]
  - DRUG INEFFECTIVE [None]
  - DRUG WITHDRAWAL SYNDROME [None]
